FAERS Safety Report 4501975-2 (Version None)
Quarter: 2004Q4

REPORT INFORMATION
  Report Type: 
  Country: None (occurrence: None)
  Receive Date: 20041109
  Receipt Date: 20041025
  Transmission Date: 20050328
  Serious: Yes (Hospitalization)
  Sender: FDA-Public Use
  Company Number: DE_041014451

PATIENT
  Age: 63 Year
  Sex: Female

DRUGS (1)
  1. GEMZAR [Suspect]
     Indication: OVARIAN CANCER
     Dosage: 1500 MG
     Dates: start: 20040501, end: 20040101

REACTIONS (3)
  - DYSPNOEA AT REST [None]
  - DYSPNOEA EXERTIONAL [None]
  - PNEUMONIA VIRAL [None]
